FAERS Safety Report 6408144-X (Version None)
Quarter: 2009Q4

REPORT INFORMATION
  Report Type: 
  Country: None (occurrence: None)
  Receive Date: 20091019
  Receipt Date: 20091013
  Transmission Date: 20100525
  Serious: Yes (Hospitalization)
  Sender: FDA-Public Use
  Company Number: US024566

PATIENT
  Age: 64 Year
  Sex: Female
  Weight: 59 kg

DRUGS (2)
  1. TREANDA [Suspect]
     Indication: NON-HODGKIN'S LYMPHOMA
     Dosage: 150 MG, 4 CYCLES, INTRAVENOUS
     Route: 042
     Dates: start: 20080401
  2. RITUXIMAB (RITUXIMAB) [Concomitant]

REACTIONS (7)
  - CHOLECYSTITIS [None]
  - HAEMOLYTIC ANAEMIA [None]
  - HERPES ZOSTER [None]
  - IMMUNOSUPPRESSION [None]
  - LUNG NEOPLASM [None]
  - PANCYTOPENIA [None]
  - PNEUMONIA FUNGAL [None]
